FAERS Safety Report 6640689-X (Version None)
Quarter: 2010Q1

REPORT INFORMATION
  Report Type: 
  Country: None (occurrence: None)
  Receive Date: 20100318
  Receipt Date: 20100223
  Transmission Date: 20100710
  Serious: Yes (Other)
  Sender: FDA-Public Use
  Company Number: US-JNJCH-2010004885

PATIENT
  Age: 56 Year
  Sex: Female
  Weight: 90.3 kg

DRUGS (1)
  1. ZYRTEC [Suspect]
     Indication: HYPERSENSITIVITY
     Route: 048
     Dates: start: 20100205, end: 20100222

REACTIONS (1)
  - HYPERSENSITIVITY [None]
